FAERS Safety Report 25280841 (Version 5)
Quarter: 2025Q4

REPORT INFORMATION
  Report Type: Spontaneous
  Country: EU (occurrence: EU)
  Receive Date: 20250508
  Receipt Date: 20251014
  Transmission Date: 20260118
  Serious: Yes (Death)
  Sender: NOVARTIS
  Company Number: EU-002147023-NVSC2025CZ074138

PATIENT
  Age: 3 Month
  Sex: Female

DRUGS (1)
  1. ZOLGENSMA [Suspect]
     Active Substance: ONASEMNOGENE ABEPARVOVEC-XIOI
     Indication: Product used for unknown indication
     Dosage: UNK, ONCE/SINGLE
     Route: 042
     Dates: start: 20231019, end: 20231019

REACTIONS (3)
  - Spinal epidural haematoma [Fatal]
  - Subdural haematoma [Fatal]
  - Haemorrhage [Fatal]
